FAERS Safety Report 5115397-7 (Version None)
Quarter: 2006Q3

REPORT INFORMATION
  Report Type: 
  Country: None (occurrence: None)
  Receive Date: 20060922
  Receipt Date: 19921126
  Transmission Date: 20061208
  Serious: Yes (Other)
  Sender: FDA-Public Use
  Company Number: 2006110189

PATIENT
  Age: 68 Year
  Sex: Male

DRUGS (6)
  1. IRINOTECAN HCL [Suspect]
     Indication: COLON CANCER
     Dosage: 612 MG (1 IN 3 WK), INTRAVENOUS
     Route: 042
     Dates: start: 19920817, end: 19920817
  2. CYPROHEPTADINE HCL [Concomitant]
  3. MULTIVITAMINS WITH MINERALS (MULTIVITAMINS WITH MINERALS) [Concomitant]
  4. MORPHINE [Concomitant]
  5. PHLOROGLUCINOL (PHLOROGLUCINOL) [Concomitant]
  6. THEODRENALINE (THEODRENALINE) [Concomitant]

REACTIONS (1)
  - NO ADVERSE EFFECT [None]
